FAERS Safety Report 6378665-7 (Version None)
Quarter: 2009Q3

REPORT INFORMATION
  Report Type: 
  Country: None (occurrence: None)
  Receive Date: 20090928
  Receipt Date: 20090918
  Transmission Date: 20100115
  Serious: Yes (Hospitalization)
  Sender: FDA-Public Use
  Company Number: CA-AMGEN-KDL263730

PATIENT
  Sex: Female
  Weight: 59 kg

DRUGS (3)
  1. ENBREL [Suspect]
     Indication: RHEUMATOID ARTHRITIS
     Route: 058
     Dates: start: 20070405
  2. SYNTHROID [Concomitant]
  3. FUROSEMIDE [Concomitant]

REACTIONS (6)
  - ABDOMINAL HERNIA [None]
  - DIVERTICULITIS [None]
  - GASTROINTESTINAL INFECTION [None]
  - INJECTION SITE PAIN [None]
  - INJECTION SITE REACTION [None]
  - PRODUCTIVE COUGH [None]
